FAERS Safety Report 25764781 (Version 1)
Quarter: 2025Q3

REPORT INFORMATION
  Report Type: Spontaneous
  Country: US (occurrence: US)
  Receive Date: 20250905
  Receipt Date: 20250905
  Transmission Date: 20251021
  Serious: No
  Sender: TEVA
  Company Number: US-TEVA-VS-3367761

PATIENT
  Sex: Male

DRUGS (1)
  1. VILAZODONE HYDROCHLORIDE [Suspect]
     Active Substance: VILAZODONE HYDROCHLORIDE
     Indication: Depression
     Dosage: OVAL BLUE TV V72, TEVA
     Route: 065
     Dates: start: 20250730, end: 2025

REACTIONS (7)
  - Depression [Unknown]
  - Decreased appetite [Unknown]
  - Pruritus [Unknown]
  - Drug ineffective [Unknown]
  - Anxiety [Unknown]
  - Irritability [Unknown]
  - Illness [Unknown]

NARRATIVE: CASE EVENT DATE: 20250730
